FAERS Safety Report 4351387-X (Version None)
Quarter: 2004Q2

REPORT INFORMATION
  Report Type: 
  Country: None (occurrence: None)
  Receive Date: 20040430
  Receipt Date: 20040430
  Transmission Date: 20050107
  Serious: Yes (Hospitalization)
  Sender: FDA-Public Use
  Company Number: None

PATIENT
  Sex: Female

DRUGS (9)
  1. PHENYTOIN [Suspect]
     Indication: STARING
     Dosage: 300 MG QHS ORAL
     Route: 048
     Dates: start: 20030201, end: 20040223
  2. PHENYTOIN [Concomitant]
  3. SYNTHROID [Concomitant]
  4. ENALAPRIL MALEATE AND HYDROCHLOROTHIAZIDE [Concomitant]
  5. ASPIRIN [Concomitant]
  6. PHENYTOIN [Concomitant]
  7. . [Concomitant]
  8. . [Concomitant]
  9. . [Concomitant]

REACTIONS (6)
  - CONFUSIONAL STATE [None]
  - DRUG TOXICITY [None]
  - DYSARTHRIA [None]
  - ENCEPHALOPATHY [None]
  - NYSTAGMUS [None]
  - RESTLESSNESS [None]
